FAERS Safety Report 10197780 (Version 1)
Quarter: 2014Q2

REPORT INFORMATION
  Report Type: Spontaneous
  Country: FR (occurrence: FR)
  Receive Date: 20140527
  Receipt Date: 20140527
  Transmission Date: 20141212
  Serious: Yes (Life-Threatening, Hospitalization)
  Sender: FDA-Public Use
  Company Number: FR-BRISTOL-MYERS SQUIBB COMPANY-20750204

PATIENT
  Age: 72 Year
  Sex: Female

DRUGS (9)
  1. SPRYCEL (CML) TABS [Suspect]
     Indication: CHRONIC MYELOID LEUKAEMIA
     Route: 048
     Dates: start: 201205, end: 20131217
  2. VERAPAMIL [Concomitant]
  3. SITAGLIPTIN PHOSPHATE [Concomitant]
  4. METFORMIN [Concomitant]
  5. ATORVASTATIN [Concomitant]
  6. ALPRAZOLAM [Concomitant]
  7. ALLOPURINOL [Concomitant]
  8. KARDEGIC [Concomitant]
  9. VITAMIN C [Concomitant]

REACTIONS (4)
  - Pericardial effusion [Recovering/Resolving]
  - Cardiac tamponade [Recovering/Resolving]
  - Pleural effusion [Recovering/Resolving]
  - Skin ulcer [Unknown]
